FAERS Safety Report 21247033 (Version 1)
Quarter: 2022Q3

REPORT INFORMATION
  Report Type: Spontaneous
  Country: US (occurrence: None)
  Receive Date: 20220823
  Receipt Date: 20220823
  Transmission Date: 20221027
  Serious: No
  Sender: FDA-Public Use
  Company Number: None

PATIENT
  Age: 16 Year
  Sex: 0

DRUGS (2)
  1. STELARA [Suspect]
     Active Substance: USTEKINUMAB
  2. REMICADE [Suspect]
     Active Substance: INFLIXIMAB

REACTIONS (3)
  - Infusion related reaction [None]
  - Dyspnoea [None]
  - Throat tightness [None]
